FAERS Safety Report 4540909-1 (Version None)
Quarter: 2004Q4

REPORT INFORMATION
  Report Type: 
  Country: None (occurrence: None)
  Receive Date: 20041229
  Receipt Date: 20040803
  Transmission Date: 20050328
  Serious: Yes (Life-Threatening)
  Sender: FDA-Public Use
  Company Number: 2004JP001464

PATIENT
  Age: 69 Year
  Sex: Female

DRUGS (1)
  1. CEFAMEZIN [Suspect]
     Dosage: 1G PER DAY
     Route: 042
     Dates: start: 20040726, end: 20040726

REACTIONS (1)
  - ANAPHYLACTIC SHOCK [None]
